FAERS Safety Report 9303751 (Version 3)
Quarter: 2013Q3

REPORT INFORMATION
  Report Type: Spontaneous
  Country: US (occurrence: US)
  Receive Date: 20130522
  Receipt Date: 20130823
  Transmission Date: 20140515
  Serious: Yes (Other)
  Sender: FDA-Public Use
  Company Number: US-GLAXOSMITHKLINE-A1023708A

PATIENT
  Age: 61 Year
  Sex: Female
  Weight: 68.2 kg

DRUGS (11)
  1. VENTOLIN HFA [Suspect]
     Indication: BRONCHITIS
     Dosage: 2PUFF AS REQUIRED
     Route: 055
     Dates: start: 20130502
  2. HYDROCHLOROTHIAZIDE [Concomitant]
  3. QUINAPRIL [Concomitant]
  4. SINGULAIR [Concomitant]
  5. CELEBREX [Concomitant]
  6. ACTONEL [Concomitant]
  7. AMBIEN [Concomitant]
  8. SYNTHROID [Concomitant]
  9. ATORVASTATIN [Concomitant]
  10. METOPROLOL [Concomitant]
  11. SYMBICORT [Concomitant]

REACTIONS (6)
  - Productive cough [Recovered/Resolved]
  - Insomnia [Recovered/Resolved]
  - Increased upper airway secretion [Recovered/Resolved]
  - Respiratory tract congestion [Recovered/Resolved]
  - Cough [Recovered/Resolved]
  - Product quality issue [Unknown]
